FAERS Safety Report 24243961 (Version 1)
Quarter: 2024Q3

REPORT INFORMATION
  Report Type: Spontaneous
  Country: US (occurrence: US)
  Receive Date: 20240823
  Receipt Date: 20240823
  Transmission Date: 20241017
  Serious: Yes (Other)
  Sender: ALCON
  Company Number: US-ALCON LABORATORIES-ALC2024US003837

PATIENT
  Age: 56 Year
  Sex: Female

DRUGS (2)
  1. LOTEPREDNOL ETABONATE [Suspect]
     Active Substance: LOTEPREDNOL ETABONATE
     Indication: Ocular pemphigoid
     Dosage: UNK
     Route: 047
  2. TACROLIMUS [Suspect]
     Active Substance: TACROLIMUS
     Indication: Ocular pemphigoid
     Dosage: UNK
     Route: 065

REACTIONS (3)
  - Glaucoma [Unknown]
  - Ocular cancer metastatic [Unknown]
  - Off label use [Unknown]
